FAERS Safety Report 9317641 (Version 1)
Quarter: 2013Q2

REPORT INFORMATION
  Report Type: Spontaneous
  Country: US (occurrence: US)
  Receive Date: 20130530
  Receipt Date: 20130530
  Transmission Date: 20140414
  Serious: No
  Sender: FDA-Public Use
  Company Number: US-GLAXOSMITHKLINE-A0974810A

PATIENT
  Age: 50 Year
  Sex: Male

DRUGS (6)
  1. VENTOLIN [Suspect]
     Indication: CHRONIC OBSTRUCTIVE PULMONARY DISEASE
     Dosage: 2PUFF AS REQUIRED
     Route: 055
     Dates: start: 201004
  2. TRAMADOL [Concomitant]
  3. IBUPROFEN [Concomitant]
  4. AMBIEN [Concomitant]
  5. SPIRIVA [Concomitant]
  6. SYMBICORT [Concomitant]

REACTIONS (2)
  - Drug ineffective [Not Recovered/Not Resolved]
  - Product quality issue [Unknown]
